FAERS Safety Report 9666328 (Version 2)
Quarter: 2013Q4

REPORT INFORMATION
  Report Type: Spontaneous
  Country: US (occurrence: US)
  Receive Date: 20131104
  Receipt Date: 20131104
  Transmission Date: 20140711
  Serious: No
  Sender: FDA-Public Use
  Company Number: US201207005649

PATIENT
  Age: 63 Year
  Sex: Female
  Weight: 113.83 kg

DRUGS (21)
  1. BYDUREON 2MG VIAL + SYRINGE [Suspect]
     Indication: INSULIN-REQUIRING TYPE 2 DIABETES MELLITUS
     Route: 058
     Dates: start: 201202
  2. BYETTA PEN DISPOSABLE [Suspect]
     Indication: INSULIN-REQUIRING TYPE 2 DIABETES MELLITUS
     Route: 058
     Dates: end: 2012
  3. EXENATIDE UNK STRENGTH PEN, DISPOSABLE DEVICE [Concomitant]
  4. LANTUS [Concomitant]
     Indication: INSULIN-REQUIRING TYPE 2 DIABETES MELLITUS
     Route: 058
     Dates: start: 2011
  5. LANTUS [Concomitant]
     Indication: INSULIN-REQUIRING TYPE 2 DIABETES MELLITUS
     Route: 058
  6. INSULIN [Concomitant]
     Route: 058
  7. DIOVAN HCT [Concomitant]
  8. CYMBALTA [Concomitant]
  9. PROCRIT [Concomitant]
  10. METOPROLOL SUCCINATE [Concomitant]
  11. ASPIRIN [Concomitant]
  12. VITAMIN C [Concomitant]
  13. FOLIC ACID [Concomitant]
  14. CRESTOR [Concomitant]
  15. PRO-AIR [Concomitant]
  16. MUCINEX [Concomitant]
  17. TRAVATAN [Concomitant]
  18. OMNARIS [Concomitant]
  19. LASIX [Concomitant]
  20. MECLIZINE [Concomitant]
  21. ADVAIR [Concomitant]

REACTIONS (14)
  - Blood glucose increased [Recovered/Resolved]
  - Sinusitis [Unknown]
  - Fungal infection [Unknown]
  - Off label use [Unknown]
  - Diarrhoea [Not Recovered/Not Resolved]
  - Nausea [Not Recovered/Not Resolved]
  - Constipation [Not Recovered/Not Resolved]
  - Vomiting [Not Recovered/Not Resolved]
  - Gastrooesophageal reflux disease [Not Recovered/Not Resolved]
  - Headache [Not Recovered/Not Resolved]
  - Dysphonia [Not Recovered/Not Resolved]
  - Thyroid function test abnormal [Not Recovered/Not Resolved]
  - Injection site nodule [Recovering/Resolving]
  - Tooth extraction [Recovering/Resolving]
